FAERS Safety Report 9025140 (Version 2)
Quarter: 2013Q2

REPORT INFORMATION
  Report Type: Other
  Country: GB (occurrence: GB)
  Receive Date: 20130122
  Receipt Date: 20130621
  Transmission Date: 20140414
  Serious: Yes (Other)
  Sender: FDA-Public Use
  Company Number: GB-WATSON-2013-00680

PATIENT
  Age: 16 Year
  Sex: Female
  Weight: 53 kg

DRUGS (19)
  1. DOXORUBICIN [Suspect]
     Indication: OSTEOSARCOMA
     Dosage: 59 MG, DAILY  DOSAGE FORM: LIPOSOME INJECTION LIQUID
     Route: 042
     Dates: start: 20120417, end: 20120419
  2. ONDANSETRON HYDROCHLORIDE (UNKNOWN) [Suspect]
     Indication: PROPHYLAXIS OF NAUSEA AND VOMITING
     Dosage: 8 MG, BID
     Route: 048
     Dates: start: 20120418, end: 20120420
  3. ONDANSETRON HYDROCHLORIDE (UNKNOWN) [Suspect]
     Dosage: 8 MG, DAILY
     Route: 048
     Dates: start: 20120417, end: 20120417
  4. DEXAMETHASONE SODIUM PHOSPHATE (WATSON LABORATORIES) [Suspect]
     Indication: PROPHYLAXIS OF NAUSEA AND VOMITING
     Dosage: 12 ML, DAILY
     Route: 042
     Dates: start: 20120417, end: 20120417
  5. DEXAMETHASONE SODIUM PHOSPHATE (WATSON LABORATORIES) [Suspect]
     Dosage: 15 ML, DAILY
     Route: 042
     Dates: start: 20120418, end: 20120420
  6. APREPITANT [Suspect]
     Indication: PROPHYLAXIS OF NAUSEA AND VOMITING
     Dosage: 80 MG, UNKNOWN
     Route: 048
     Dates: start: 20120418, end: 20120419
  7. APREPITANT [Suspect]
     Dosage: 125 MG, UNKNOWN
     Route: 048
     Dates: start: 20120417, end: 20120417
  8. CISPLATIN [Suspect]
     Indication: OSTEOSARCOMA
     Dosage: 63 MG, DAILY
     Route: 042
     Dates: start: 20120417, end: 20120420
  9. TETRACAINE [Concomitant]
     Indication: ANALGESIC THERAPY
     Dosage: UNK, UNKNOWN
     Route: 061
     Dates: start: 20120413, end: 20120413
  10. METOCLOPRAMIDE [Concomitant]
     Indication: VOMITING
     Dosage: 10 MG, Q6H
     Route: 065
     Dates: start: 20120419, end: 20120419
  11. METOCLOPRAMIDE [Concomitant]
     Indication: NAUSEA
  12. ACETAMINOPHEN [Concomitant]
     Indication: ANALGESIC THERAPY
     Dosage: 1 G, DAILY
     Route: 065
     Dates: start: 20120413, end: 20120418
  13. LACTULOSE [Concomitant]
     Indication: CONSTIPATION
     Dosage: 10 ML, DAILY
     Route: 065
     Dates: start: 20120420
  14. LACTULOSE [Concomitant]
     Dosage: 10 ML, BID
     Route: 065
     Dates: start: 20120419
  15. LACTULOSE [Concomitant]
     Dosage: 10 ML, DAILY
     Route: 065
     Dates: start: 20120418
  16. DIAZEPAM [Concomitant]
     Indication: SEDATION
     Dosage: 3 MG, UNKNOWN
     Route: 065
     Dates: start: 20120424
  17. DIHYDROCODEINE [Concomitant]
     Indication: PAIN MANAGEMENT
     Dosage: 30MG 2 IN 1 AS NECESSARY
     Route: 065
     Dates: start: 20120414, end: 20120415
  18. ONDANSETRON [Concomitant]
     Indication: NAUSEA
     Dosage: 5 MG, BID
     Route: 042
     Dates: start: 20120414, end: 20120414
  19. LEVOMEPROMAZINE [Concomitant]
     Indication: VOMITING
     Dosage: 25 MG, BID
     Route: 042
     Dates: start: 20120419, end: 20120419

REACTIONS (3)
  - Electrocardiogram T wave inversion [Recovered/Resolved]
  - Sinus arrhythmia [Recovered/Resolved]
  - Dyskinesia [Recovered/Resolved]
